FAERS Safety Report 18951941 (Version 1)
Quarter: 2021Q1

REPORT INFORMATION
  Report Type: Report from Study
  Country: US (occurrence: US)
  Receive Date: 20210301
  Receipt Date: 20210301
  Transmission Date: 20210420
  Serious: Yes (Hospitalization)
  Sender: FDA-Public Use
  Company Number: US-ROCHE-2771871

PATIENT
  Age: 41 Year
  Sex: Female
  Weight: 80.3 kg

DRUGS (1)
  1. ATEZOLIZUMAB. [Suspect]
     Active Substance: ATEZOLIZUMAB
     Indication: CERVIX CARCINOMA
     Route: 041
     Dates: start: 20210126

REACTIONS (3)
  - Pyrexia [Not Recovered/Not Resolved]
  - Constipation [Unknown]
  - Urinary tract infection [Unknown]

NARRATIVE: CASE EVENT DATE: 20210207
